FAERS Safety Report 8364562-4 (Version None)
Quarter: 2012Q2

REPORT INFORMATION
  Report Type: 
  Country: None (occurrence: None)
  Receive Date: 20120516
  Receipt Date: 20120509
  Transmission Date: 20120825
  Serious: Yes (Hospitalization)
  Sender: FDA-Public Use
  Company Number: FI-ROCHE-797793

PATIENT
  Age: 27 Year
  Sex: Male

DRUGS (5)
  1. METHOTREXATE [Suspect]
     Indication: WEGENER'S GRANULOMATOSIS
     Dates: end: 20110613
  2. PREDNISONE TAB [Concomitant]
  3. PREDNISONE TAB [Concomitant]
     Indication: WEGENER'S GRANULOMATOSIS
     Route: 048
  4. MABTHERA [Suspect]
     Indication: WEGENER'S GRANULOMATOSIS
     Dosage: FREQUENCY: ON DAY 1 AND DAY 15
     Route: 042
     Dates: start: 20110114, end: 20110128
  5. KALCIPOS-D [Concomitant]
     Indication: PROPHYLAXIS

REACTIONS (2)
  - NEUTROPENIC SEPSIS [None]
  - TINEA VERSICOLOUR [None]
